FAERS Safety Report 9006086 (Version 1)
Quarter: 2013Q1

REPORT INFORMATION
  Report Type: Spontaneous
  Country: ES (occurrence: ES)
  Receive Date: 20130109
  Receipt Date: 20130109
  Transmission Date: 20140127
  Serious: Yes (Other)
  Sender: FDA-Public Use
  Company Number: PHHY2013ES001624

PATIENT
  Age: 44 Year
  Sex: Female

DRUGS (4)
  1. DEXAMETHASONE [Suspect]
     Indication: PROPHYLAXIS OF NAUSEA AND VOMITING
     Dosage: 4 MG, UNK
     Route: 042
  2. 5 FLUORO URACIL [Concomitant]
     Indication: BREAST CANCER
  3. EPIRUBICIN [Concomitant]
     Indication: BREAST CANCER
  4. CYCLOPHOSPHAMIDE [Concomitant]
     Indication: BREAST CANCER

REACTIONS (5)
  - Chorioretinopathy [Recovering/Resolving]
  - Vision blurred [Recovering/Resolving]
  - Colour blindness acquired [Recovering/Resolving]
  - Scotoma [Recovering/Resolving]
  - Retinal detachment [Recovering/Resolving]
